FAERS Safety Report 19587413 (Version 1)
Quarter: 2021Q3

REPORT INFORMATION
  Report Type: Spontaneous
  Country: US (occurrence: US)
  Receive Date: 20210720
  Receipt Date: 20210720
  Transmission Date: 20211014
  Serious: No
  Sender: FDA-Public Use
  Company Number: None

PATIENT
  Sex: Female

DRUGS (1)
  1. OTEZLA [Suspect]
     Active Substance: APREMILAST
     Indication: PSORIASIS
     Route: 048
     Dates: start: 202102

REACTIONS (6)
  - Drug ineffective [None]
  - Pain [None]
  - Dry eye [None]
  - Eye irritation [None]
  - Fatigue [None]
  - Asthenia [None]
